FAERS Safety Report 8277431-5 (Version None)
Quarter: 2012Q2

REPORT INFORMATION
  Report Type: 
  Country: None (occurrence: None)
  Receive Date: 20120412
  Receipt Date: 20120404
  Transmission Date: 20120825
  Serious: Yes (Other)
  Sender: FDA-Public Use
  Company Number: BR-PFIZER INC-2012085120

PATIENT
  Age: 54 Year
  Sex: Female
  Weight: 60 kg

DRUGS (7)
  1. PROPRANOLOL [Concomitant]
     Indication: BLOOD PRESSURE INCREASED
     Dosage: UNK
     Dates: start: 20040403
  2. PANTOPRAZOLE [Concomitant]
     Indication: GASTRITIS
     Dosage: STRENGTH 40MG, UNK
     Dates: start: 20040403
  3. CLONAZEPAM [Concomitant]
     Indication: SLEEP DISORDER
     Dosage: 10 DROPS DAILY
     Dates: start: 20020403
  4. GEODON [Suspect]
     Indication: OBSESSIVE-COMPULSIVE DISORDER
     Dosage: 40 MG, 1X/DAY
     Route: 048
     Dates: start: 20120303
  5. MOTILIUM [Concomitant]
     Indication: REFLUX GASTRITIS
     Dosage: UNK
     Dates: start: 20110403
  6. XENICAL [Concomitant]
     Indication: FAT TISSUE INCREASED
     Dosage: UNK
     Dates: start: 20120203
  7. SERTRALINE [Concomitant]
     Indication: DEPRESSION
     Dosage: 50 MG, 3X/DAY
     Dates: start: 20120103

REACTIONS (6)
  - LIMB DISCOMFORT [None]
  - SOMNOLENCE [None]
  - SLEEP DISORDER [None]
  - MUSCULOSKELETAL DISCOMFORT [None]
  - PARAESTHESIA [None]
  - ABDOMINAL DISCOMFORT [None]
